FAERS Safety Report 4518009-6 (Version None)
Quarter: 2004Q4

REPORT INFORMATION
  Report Type: 
  Country: None (occurrence: None)
  Receive Date: 20041130
  Receipt Date: 20041115
  Transmission Date: 20050328
  Serious: Yes (Life-Threatening)
  Sender: FDA-Public Use
  Company Number: 20041100482

PATIENT
  Age: 76 Year
  Sex: Female

DRUGS (11)
  1. LORAZEPAM [Suspect]
  2. INIPOMP (PANTOPRAZOLE) [Suspect]
  3. TENORMIN [Suspect]
     Indication: MYOCARDIAL ISCHAEMIA
     Dosage: 100 MG PRN PO
     Route: 048
  4. ACETYLSALICYLATE CALCIUM [Suspect]
  5. ANSILAN (MEDAZEPAM) [Suspect]
     Indication: NEUROSIS
  6. CLOMIPRAMINE HCL [Suspect]
  7. CLONAZEPAM [Suspect]
     Indication: NEUROSIS
     Dosage: 2 MG PRN PO
     Route: 048
  8. HALOPERIDOL [Suspect]
     Indication: NEUROSIS
     Dosage: 20 MG PRN PO
     Route: 048
  9. NICARDIPINA DOROM (NICARDIPINE) [Suspect]
     Indication: MYOCARDIAL ISCHAEMIA
     Dosage: 20 MG PRN PO
     Route: 048
  10. TRIVASTAL (PIRIBEDIL) [Suspect]
  11. POLIFLU [Suspect]

REACTIONS (3)
  - ASTHENIA [None]
  - HEPATIC STEATOSIS [None]
  - HEPATITIS CHOLESTATIC [None]
